FAERS Safety Report 5943507-8 (Version None)
Quarter: 2008Q4

REPORT INFORMATION
  Report Type: 
  Country: None (occurrence: None)
  Receive Date: 20081106
  Receipt Date: 20081027
  Transmission Date: 20090506
  Serious: Yes (Other)
  Sender: FDA-Public Use
  Company Number: JP-SANOFI-SYNTHELABO-F01200801413

PATIENT
  Sex: Female
  Weight: 55 kg

DRUGS (13)
  1. AMOBAN [Concomitant]
     Dosage: 7.5 MG
     Route: 048
     Dates: start: 20071201
  2. PURSENNID [Concomitant]
     Dosage: 12 MG
     Route: 048
     Dates: start: 20071124, end: 20071208
  3. LENDORMIN [Concomitant]
     Indication: INSOMNIA
     Dosage: 0.25 MG
     Route: 048
     Dates: start: 20071122, end: 20071201
  4. MAGNESIUM OXIDE HEAVY [Concomitant]
     Route: 048
     Dates: start: 20071120
  5. DEPAS [Concomitant]
     Indication: INSOMNIA
     Dosage: 0.5 MG
     Route: 048
     Dates: start: 20071117
  6. PAXIL [Concomitant]
     Indication: INSOMNIA
     Dosage: 10 MG
     Route: 048
     Dates: start: 20071116
  7. WARFARIN POTASSIUM [Concomitant]
     Dosage: 1 MG
     Route: 048
     Dates: start: 20071108, end: 20071111
  8. WARFARIN POTASSIUM [Concomitant]
     Dosage: 2 MG
     Route: 048
     Dates: start: 20071111, end: 20071115
  9. WARFARIN POTASSIUM [Concomitant]
     Dosage: 4 MG
     Route: 048
     Dates: start: 20071115, end: 20071120
  10. WARFARIN POTASSIUM [Concomitant]
     Dosage: 5 MG
     Route: 048
     Dates: start: 20071120, end: 20071125
  11. WARFARIN POTASSIUM [Concomitant]
     Dosage: 6 MG
     Route: 048
     Dates: start: 20071125, end: 20071127
  12. BEZAFIBRATE [Concomitant]
     Route: 048
     Dates: start: 20071212
  13. CLOPIDOGREL [Suspect]
     Indication: CEREBRAL ISCHAEMIA
     Route: 048
     Dates: start: 20071127, end: 20071225

REACTIONS (1)
  - BLOOD TRIGLYCERIDES INCREASED [None]
